FAERS Safety Report 4999332-8 (Version None)
Quarter: 2006Q2

REPORT INFORMATION
  Report Type: 
  Country: None (occurrence: None)
  Receive Date: 20060509
  Receipt Date: 20060509
  Transmission Date: 20061013
  Serious: Yes (Hospitalization)
  Sender: FDA-Public Use
  Company Number: None

PATIENT
  Age: 45 Year
  Sex: Male
  Weight: 65.7716 kg

DRUGS (1)
  1. LINEZOLID [Suspect]
     Indication: INFECTION
     Dosage: 600 MG BID
     Dates: start: 20051006, end: 20051006

REACTIONS (4)
  - PRURITUS [None]
  - RASH [None]
  - SCAR [None]
  - SKIN LESION [None]
